FAERS Safety Report 11483488 (Version 1)
Quarter: 2015Q3

REPORT INFORMATION
  Report Type: Spontaneous
  Country: None (occurrence: None)
  Receive Date: 20150909
  Receipt Date: 20150909
  Transmission Date: 20151125
  Serious: No
  Sender: FDA-Public Use
  Company Number: None

PATIENT
  Age: 29 Year
  Sex: Male
  Weight: 117.94 kg

DRUGS (1)
  1. BUPROPRION HCL SR 100 MG [Suspect]
     Active Substance: BUPROPION HYDROCHLORIDE

REACTIONS (4)
  - Activities of daily living impaired [None]
  - No therapeutic response [None]
  - Asthenia [None]
  - Apathy [None]
